FAERS Safety Report 14869861 (Version 2)
Quarter: 2018Q2

REPORT INFORMATION
  Report Type: Spontaneous
  Country: US (occurrence: US)
  Receive Date: 20180509
  Receipt Date: 20180529
  Transmission Date: 20180711
  Serious: Yes (Other)
  Sender: FDA-Public Use
  Company Number: PHEH2018US017509

PATIENT
  Sex: Female

DRUGS (2)
  1. AFINITOR [Suspect]
     Active Substance: EVEROLIMUS
     Indication: RENAL CANCER
     Route: 065
  2. LENVIMA [Suspect]
     Active Substance: LENVATINIB
     Indication: RENAL CANCER
     Dosage: 18 MG, QD
     Route: 048

REACTIONS (14)
  - Pseudomonas infection [Unknown]
  - Single functional kidney [Unknown]
  - Anaemia [Unknown]
  - Thrombocytopenia [Unknown]
  - Stomatitis [Unknown]
  - Fatigue [Unknown]
  - Neutropenia [Unknown]
  - Hypertension [Unknown]
  - Back pain [Unknown]
  - Oedema peripheral [Unknown]
  - Depression [Unknown]
  - Pain [Unknown]
  - Blood creatinine increased [Unknown]
  - Anxiety [Unknown]
